FAERS Safety Report 25210097 (Version 1)
Quarter: 2025Q2

REPORT INFORMATION
  Report Type: Spontaneous
  Country: TR (occurrence: TR)
  Receive Date: 20250417
  Receipt Date: 20250417
  Transmission Date: 20250717
  Serious: Yes (Other)
  Sender: ABBVIE
  Company Number: TR-ABBVIE-6228368

PATIENT
  Age: 32 Year
  Sex: Male

DRUGS (1)
  1. RINVOQ [Suspect]
     Active Substance: UPADACITINIB
     Indication: Ankylosing spondylitis
     Route: 048
     Dates: start: 20240823, end: 20250407

REACTIONS (3)
  - Cerebral infarction [Unknown]
  - Hypoaesthesia [Unknown]
  - Hemiparesis [Unknown]

NARRATIVE: CASE EVENT DATE: 20250407
